FAERS Safety Report 5150054-2 (Version None)
Quarter: 2006Q4

REPORT INFORMATION
  Report Type: 
  Country: None (occurrence: None)
  Receive Date: 20061113
  Receipt Date: 20060927
  Transmission Date: 20070319
  Serious: Yes (Hospitalization)
  Sender: FDA-Public Use
  Company Number: CH-ABBOTT-06P-151-0345255-00

PATIENT
  Age: 43 Year
  Sex: Male
  Weight: 115 kg

DRUGS (1)
  1. REDUCTIL [Suspect]
     Indication: OBESITY
     Route: 048
     Dates: start: 20060901, end: 20060916

REACTIONS (4)
  - DIZZINESS [None]
  - FLANK PAIN [None]
  - NAUSEA [None]
  - RENAL INFARCT [None]
